FAERS Safety Report 8123983-5 (Version None)
Quarter: 2012Q1

REPORT INFORMATION
  Report Type: 
  Country: None (occurrence: None)
  Receive Date: 20120209
  Receipt Date: 20120126
  Transmission Date: 20120608
  Serious: Yes (Other)
  Sender: FDA-Public Use
  Company Number: BR-AMGEN-BRASP2011068159

PATIENT
  Age: 53 Year
  Sex: Female
  Weight: 54 kg

DRUGS (6)
  1. ENBREL [Suspect]
     Dosage: PRE FILLED PEN
     Route: 058
     Dates: start: 20111215
  2. ENBREL [Suspect]
     Indication: RHEUMATOID ARTHRITIS
     Dosage: 50 MG, 1X/WEEK
     Route: 058
     Dates: start: 20110101, end: 20110901
  3. ENBREL [Suspect]
     Dosage: PRE FILLED PEN
     Route: 058
     Dates: start: 20111001, end: 20111101
  4. ARAVA [Concomitant]
     Dosage: UNK
  5. PREDNISONE [Concomitant]
     Dosage: UNK
  6. RANITIDINE [Concomitant]
     Dosage: UNK

REACTIONS (10)
  - ARTHRITIS [None]
  - DIZZINESS [None]
  - MOVEMENT DISORDER [None]
  - OEDEMA PERIPHERAL [None]
  - NAUSEA [None]
  - EAR INFECTION [None]
  - SWELLING [None]
  - ACTIVITIES OF DAILY LIVING IMPAIRED [None]
  - MALAISE [None]
  - INJECTION SITE PAIN [None]
